FAERS Safety Report 9844733 (Version 2)
Quarter: 2014Q2

REPORT INFORMATION
  Report Type: Spontaneous
  Country: US (occurrence: US)
  Receive Date: 20140127
  Receipt Date: 20140425
  Transmission Date: 20141212
  Serious: Yes (Hospitalization)
  Sender: FDA-Public Use
  Company Number: US-BEH-2014040257

PATIENT
  Age: 72 Year
  Sex: Female
  Weight: 75 kg

DRUGS (2)
  1. PRIVIGEN [Suspect]
     Dosage: 10 GM VIAL; VIA GRAVITY OVER 2-8 HOURS
     Route: 042
  2. PRIVIGEN [Suspect]
     Dosage: INFUXE OVER 2-8 HOURS
     Route: 042

REACTIONS (2)
  - Pneumonia [Unknown]
  - Urinary tract infection [Recovered/Resolved]
